FAERS Safety Report 25819922 (Version 1)
Quarter: 2025Q3

REPORT INFORMATION
  Report Type: Spontaneous
  Country: EU (occurrence: EU)
  Receive Date: 20250918
  Receipt Date: 20250918
  Transmission Date: 20251021
  Serious: Yes (Other)
  Sender: PRINSTON PHARMACEUTICAL
  Company Number: EU-PRINSTON PHARMACEUTICAL INC.-2025PRN00306

PATIENT
  Age: 78 Year
  Sex: Female

DRUGS (3)
  1. METFORMIN HYDROCHLORIDE [Suspect]
     Active Substance: METFORMIN HYDROCHLORIDE
     Dosage: 0.5 MG, TWICE DAILY IN THE MORNING AND EVENING
     Dates: start: 1999, end: 2001
  2. BISOPROLOL FUMARATE [Suspect]
     Active Substance: BISOPROLOL FUMARATE
     Dosage: 2.5 MG, ONCE DAILY IN THE MORNING
     Dates: start: 1999, end: 2001
  3. AMLODIPINE\HYDROCHLOROTHIAZIDE\VALSARTAN [Suspect]
     Active Substance: AMLODIPINE\HYDROCHLOROTHIAZIDE\VALSARTAN
     Dosage: UNK, ONCE IN THE EVENING
     Dates: start: 2022

REACTIONS (1)
  - Basal cell carcinoma [Recovering/Resolving]
